FAERS Safety Report 9131600 (Version 1)
Quarter: 2013Q1

REPORT INFORMATION
  Report Type: Spontaneous
  Country: US (occurrence: US)
  Receive Date: 20130301
  Receipt Date: 20130301
  Transmission Date: 20140127
  Serious: Yes (Other)
  Sender: FDA-Public Use
  Company Number: US-MYLANLABS-2012S1008982

PATIENT
  Sex: Female

DRUGS (3)
  1. ACCUTANE [Suspect]
     Indication: ACNE
     Route: 048
     Dates: start: 198901, end: 199012
  2. AMNESTEEM CAPSULES [Suspect]
     Indication: ACNE
     Route: 048
     Dates: start: 20090116, end: 20090216
  3. CLARAVIS [Suspect]
     Indication: ACNE
     Route: 048
     Dates: start: 20090220, end: 20090320

REACTIONS (1)
  - Inflammatory bowel disease [Not Recovered/Not Resolved]
